FAERS Safety Report 16285281 (Version 1)
Quarter: 2019Q2

REPORT INFORMATION
  Report Type: Spontaneous
  Country: DE (occurrence: DE)
  Receive Date: 20190508
  Receipt Date: 20190508
  Transmission Date: 20190711
  Serious: Yes (Other)
  Sender: FDA-Public Use
  Company Number: DE-SA-2019SA122436

PATIENT
  Age: 32 Year
  Sex: Female

DRUGS (1)
  1. LEMTRADA [Suspect]
     Active Substance: ALEMTUZUMAB
     Dosage: UNK UNK, UNK
     Route: 065
     Dates: start: 201711

REACTIONS (4)
  - Catheterisation venous [Unknown]
  - Haemothorax [Unknown]
  - Vasodilatation [Unknown]
  - Plasmapheresis [Unknown]

NARRATIVE: CASE EVENT DATE: 201804
